FAERS Safety Report 7494745-7 (Version None)
Quarter: 2011Q2

REPORT INFORMATION
  Report Type: 
  Country: None (occurrence: None)
  Receive Date: 20110520
  Receipt Date: 20110516
  Transmission Date: 20111010
  Serious: Yes (Other)
  Sender: FDA-Public Use
  Company Number: JP-ABBOTT-11P-087-0726029-00

PATIENT
  Age: 58 Year
  Sex: Male

DRUGS (4)
  1. MYCOBUTIN [Suspect]
     Indication: ATYPICAL MYCOBACTERIAL INFECTION
     Dates: start: 20090209, end: 20090223
  2. ETHAMBUTOL HYDROCHLORIDE [Concomitant]
     Indication: ATYPICAL MYCOBACTERIAL INFECTION
     Dates: start: 20090209, end: 20090223
  3. CLARITHROMYCIN [Suspect]
     Indication: ATYPICAL MYCOBACTERIAL INFECTION
     Route: 048
     Dates: start: 20090209, end: 20090220
  4. CLARITHROMYCIN [Suspect]
     Dates: start: 20090221, end: 20090223

REACTIONS (3)
  - PYREXIA [None]
  - MALAISE [None]
  - DRUG ERUPTION [None]
